FAERS Safety Report 24188130 (Version 1)
Quarter: 2024Q3

REPORT INFORMATION
  Report Type: Spontaneous
  Country: HR (occurrence: HR)
  Receive Date: 20240808
  Receipt Date: 20240808
  Transmission Date: 20241017
  Serious: Yes (Other)
  Sender: BAYER
  Company Number: None

PATIENT
  Age: 27 Year
  Sex: Female
  Weight: 68 kg

DRUGS (2)
  1. YAZ [Suspect]
     Active Substance: DROSPIRENONE\ETHINYL ESTRADIOL
     Indication: Contraception
     Dosage: 1 DF, QD
     Route: 048
     Dates: start: 20220501, end: 20240719
  2. YAZ [Suspect]
     Active Substance: DROSPIRENONE\ETHINYL ESTRADIOL
     Indication: Polycystic ovaries

REACTIONS (9)
  - Suicidal behaviour [Unknown]
  - Respiratory rate increased [Unknown]
  - Panic attack [Not Recovered/Not Resolved]
  - Paranoia [Unknown]
  - Anxiety [Not Recovered/Not Resolved]
  - Conversion disorder [Unknown]
  - Chest discomfort [Unknown]
  - Mood altered [Unknown]
  - Heart rate increased [Unknown]

NARRATIVE: CASE EVENT DATE: 20220501
